FAERS Safety Report 17987629 (Version 1)
Quarter: 2020Q3

REPORT INFORMATION
  Report Type: Spontaneous
  Country: US (occurrence: US)
  Receive Date: 20200706
  Receipt Date: 20200706
  Transmission Date: 20201103
  Serious: Yes (Life-Threatening)
  Sender: FDA-Public Use
  Company Number: None

PATIENT
  Age: 50 Year
  Sex: Female

DRUGS (1)
  1. FLUCONAZOLE (FLUCONAZOLE 150MG TAB) [Suspect]
     Active Substance: FLUCONAZOLE
     Indication: VULVOVAGINAL CANDIDIASIS
     Route: 048
     Dates: start: 20200229, end: 20200229

REACTIONS (2)
  - Angioedema [None]
  - Pruritus [None]

NARRATIVE: CASE EVENT DATE: 20200229
